FAERS Safety Report 23028960 (Version 1)
Quarter: 2023Q4

REPORT INFORMATION
  Report Type: Spontaneous
  Country: GB (occurrence: GB)
  Receive Date: 20231004
  Receipt Date: 20231004
  Transmission Date: 20240109
  Serious: Yes (Hospitalization)
  Sender: FDA-Public Use
  Company Number: GB-TASMAN PHARMA, INC.-2023TSM00155

PATIENT
  Sex: Male

DRUGS (11)
  1. CLOZAPINE [Suspect]
     Active Substance: CLOZAPINE
     Indication: Schizoaffective disorder
     Dosage: TITRATION
  2. CLOZAPINE [Suspect]
     Active Substance: CLOZAPINE
     Dosage: MODEST REDUCTION
  3. CLOZAPINE [Suspect]
     Active Substance: CLOZAPINE
     Dosage: CAUTIOUSLY INCREASED
  4. CLOZAPINE [Suspect]
     Active Substance: CLOZAPINE
     Dosage: SLOWLY REPLACED WITH AMISULPRIDE
  5. LITHIUM [Concomitant]
     Active Substance: LITHIUM
     Indication: Mood swings
     Dosage: UNK
  6. LITHIUM [Concomitant]
     Active Substance: LITHIUM
     Dosage: ESCALATION OF THE DOSE
  7. LITHIUM [Concomitant]
     Active Substance: LITHIUM
     Dosage: SIGNIFICANT REDUCTION
  8. LITHIUM [Concomitant]
     Active Substance: LITHIUM
     Dosage: CAUTIOUSLY INCREASED
  9. LITHIUM [Concomitant]
     Active Substance: LITHIUM
     Dosage: REDUCED
  10. LITHIUM [Concomitant]
     Active Substance: LITHIUM
     Dosage: FURTHER INCREASED
  11. LITHIUM [Concomitant]
     Active Substance: LITHIUM
     Dosage: REDUCTION IN HIS LITHIUM (OWING TO TIREDNESS)

REACTIONS (1)
  - Acute febrile neutrophilic dermatosis [Recovered/Resolved]
